FAERS Safety Report 9895318 (Version 1)
Quarter: 2014Q1

REPORT INFORMATION
  Report Type: Spontaneous
  Country: US (occurrence: US)
  Receive Date: 20140213
  Receipt Date: 20140213
  Transmission Date: 20141002
  Serious: No
  Sender: FDA-Public Use
  Company Number: US-BRISTOL-MYERS SQUIBB COMPANY-18935536

PATIENT
  Age: 54 Year
  Sex: Female
  Weight: 71.2 kg

DRUGS (6)
  1. ABATACEPT SUBQ INJECTION 125MG/ML [Suspect]
     Route: 058
  2. SYNTHROID [Concomitant]
     Dosage: TAB
  3. PLAQUENIL [Concomitant]
     Dosage: TAB
  4. PREDNISONE [Concomitant]
     Dosage: TAB
  5. CYMBALTA [Concomitant]
     Dosage: CAPS
  6. DOXYCYCLINE HYCLATE TABS [Concomitant]

REACTIONS (2)
  - Staphylococcal infection [Recovered/Resolved]
  - Lymphadenopathy [Recovered/Resolved]
